FAERS Safety Report 12347558 (Version 2)
Quarter: 2016Q2

REPORT INFORMATION
  Report Type: Other
  Country: None (occurrence: US)
  Receive Date: 20160509
  Receipt Date: 20160513
  Transmission Date: 20160815
  Serious: Yes (Congenital Anomaly)
  Sender: FDA-Public Use
  Company Number: US-ANTARES PHARMA, INC.-2016-LIT-ME-0262

PATIENT
  Sex: Male
  Weight: 1.55 kg

DRUGS (1)
  1. METHOTREXATE [Suspect]
     Active Substance: METHOTREXATE
     Indication: ABORTION INDUCED

REACTIONS (5)
  - Pigmentation disorder [None]
  - Low set ears [None]
  - High arched palate [None]
  - Craniosynostosis [None]
  - Clinodactyly [None]
